FAERS Safety Report 6028364-6 (Version None)
Quarter: 2009Q1

REPORT INFORMATION
  Report Type: 
  Country: None (occurrence: None)
  Receive Date: 20090106
  Receipt Date: 20081229
  Transmission Date: 20090719
  Serious: Yes (Other)
  Sender: FDA-Public Use
  Company Number: PHHY2008FR31685

PATIENT
  Sex: Male
  Weight: 85 kg

DRUGS (1)
  1. EXELON [Suspect]
     Dosage: 4.6 MG, QD
     Route: 062
     Dates: start: 20080901

REACTIONS (2)
  - APPLICATION SITE IRRITATION [None]
  - EXCORIATION [None]
